FAERS Safety Report 9140865 (Version 2)
Quarter: 2013Q2

REPORT INFORMATION
  Report Type: Spontaneous
  Country: US (occurrence: US)
  Receive Date: 20130305
  Receipt Date: 20130409
  Transmission Date: 20140414
  Serious: Yes (Other)
  Sender: FDA-Public Use
  Company Number: US-FRI-1000043123

PATIENT
  Age: 72 Year
  Sex: Female

DRUGS (9)
  1. DALIRESP [Suspect]
     Indication: CHRONIC OBSTRUCTIVE PULMONARY DISEASE
     Dosage: 500 MCG
     Route: 048
     Dates: start: 201301, end: 201303
  2. MULTAQ [Suspect]
     Indication: ATRIAL FIBRILLATION
     Dosage: BID
  3. TUDORZA PRESSAIR [Concomitant]
     Indication: CHRONIC OBSTRUCTIVE PULMONARY DISEASE
  4. ANTIBIOTIC NOS [Concomitant]
  5. DILTIAZEM [Concomitant]
     Indication: HYPERTENSION
  6. BENAZEPRIL [Concomitant]
     Indication: HYPERTENSION
  7. OXYBUTYNIN [Concomitant]
     Indication: HYPERTONIC BLADDER
  8. OMEPRAZOLE [Concomitant]
     Indication: GASTROOESOPHAGEAL REFLUX DISEASE
  9. ADVAIR [Concomitant]
     Indication: CHRONIC OBSTRUCTIVE PULMONARY DISEASE

REACTIONS (2)
  - Homicidal ideation [Recovered/Resolved]
  - Depression [Recovered/Resolved]
